FAERS Safety Report 19872269 (Version 1)
Quarter: 2021Q3

REPORT INFORMATION
  Report Type: Spontaneous
  Country: US (occurrence: US)
  Receive Date: 20210923
  Receipt Date: 20210923
  Transmission Date: 20211014
  Serious: Yes (Hospitalization)
  Sender: FDA-Public Use
  Company Number: None

PATIENT
  Sex: Male

DRUGS (6)
  1. EDURANT [Concomitant]
     Active Substance: RILPIVIRINE HYDROCHLORIDE
  2. ENTECAVIR. [Suspect]
     Active Substance: ENTECAVIR
     Indication: HEPATITIS VIRAL
     Dosage: ?          OTHER FREQUENCY:Q 48 H;?
     Route: 048
     Dates: start: 20200927
  3. ZOPIDEM [Concomitant]
     Active Substance: ZOLPIDEM TARTRATE
  4. ENTECAVIR. [Suspect]
     Active Substance: ENTECAVIR
     Indication: HEPATITIS B
     Dosage: ?          OTHER FREQUENCY:Q 48 H;?
     Route: 048
     Dates: start: 20200927
  5. PREZISTA [Concomitant]
     Active Substance: DARUNAVIR ETHANOLATE
  6. TIVICAY [Concomitant]
     Active Substance: DOLUTEGRAVIR SODIUM

REACTIONS (1)
  - COVID-19 [None]
